FAERS Safety Report 24934898 (Version 4)
Quarter: 2025Q2

REPORT INFORMATION
  Report Type: Spontaneous
  Country: GB (occurrence: GB)
  Receive Date: 20250206
  Receipt Date: 20250507
  Transmission Date: 20250717
  Serious: Yes (Life-Threatening, Disabling, Other)
  Sender: AUROBINDO
  Company Number: GB-MLMSERVICE-20250122-PI360924-00128-2

PATIENT
  Age: 9 Decade
  Sex: Male

DRUGS (17)
  1. PREDNISOLONE [Suspect]
     Active Substance: PREDNISOLONE
     Indication: Diffuse large B-cell lymphoma
     Route: 065
  2. DOXORUBICIN [Suspect]
     Active Substance: DOXORUBICIN
     Indication: Diffuse large B-cell lymphoma
     Route: 065
  3. RITUXIMAB [Suspect]
     Active Substance: RITUXIMAB
     Indication: Diffuse large B-cell lymphoma
     Route: 065
  4. CYCLOPHOSPHAMIDE [Suspect]
     Active Substance: CYCLOPHOSPHAMIDE
     Indication: Diffuse large B-cell lymphoma
     Route: 065
  5. VINCRISTINE [Suspect]
     Active Substance: VINCRISTINE
     Indication: Diffuse large B-cell lymphoma
     Route: 065
  6. DEXAMETHASONE [Suspect]
     Active Substance: DEXAMETHASONE
     Indication: Plasma cell myeloma
     Route: 065
  7. DEXAMETHASONE [Suspect]
     Active Substance: DEXAMETHASONE
     Indication: Metastases to spine
  8. DEXAMETHASONE [Suspect]
     Active Substance: DEXAMETHASONE
     Indication: Metastases to bone
  9. REVLIMID [Suspect]
     Active Substance: LENALIDOMIDE
     Indication: Plasma cell myeloma
     Route: 065
  10. REVLIMID [Suspect]
     Active Substance: LENALIDOMIDE
     Indication: Metastases to spine
  11. REVLIMID [Suspect]
     Active Substance: LENALIDOMIDE
     Indication: Metastases to bone
  12. DARATUMUMAB [Suspect]
     Active Substance: DARATUMUMAB
     Indication: Plasma cell myeloma
     Route: 065
  13. DARATUMUMAB [Suspect]
     Active Substance: DARATUMUMAB
     Indication: Metastases to spine
  14. DARATUMUMAB [Suspect]
     Active Substance: DARATUMUMAB
     Indication: Metastases to bone
  15. MAGNESIUM ASPARTATE [Concomitant]
     Active Substance: MAGNESIUM ASPARTATE
     Indication: Malnutrition
     Route: 065
  16. POTASSIUM BICARBONATE\POTASSIUM CHLORIDE [Concomitant]
     Active Substance: POTASSIUM BICARBONATE\POTASSIUM CHLORIDE
     Indication: Malnutrition
     Route: 065
  17. CHOLECALCIFEROL [Concomitant]
     Active Substance: CHOLECALCIFEROL
     Indication: Malnutrition
     Route: 065

REACTIONS (8)
  - Plasma cell myeloma [Recovering/Resolving]
  - Metastases to spine [Recovering/Resolving]
  - Metastases to bone [Recovering/Resolving]
  - Diplegia [Recovering/Resolving]
  - Fall [Unknown]
  - Thrombocytopenia [Unknown]
  - Vertigo [Unknown]
  - Microcytic anaemia [Unknown]
